FAERS Safety Report 10224854 (Version 1)
Quarter: 2014Q2

REPORT INFORMATION
  Report Type: Spontaneous
  Country: BR (occurrence: BR)
  Receive Date: 20140609
  Receipt Date: 20140609
  Transmission Date: 20141212
  Serious: Yes (Death, Hospitalization)
  Sender: FDA-Public Use
  Company Number: BR-DSJP-DSU-2014-110652

PATIENT
  Sex: 0

DRUGS (2)
  1. OLMETEC HCT 20/12.5 [Suspect]
     Indication: HYPERTENSION
     Dosage: 20MG/12.5MG
     Route: 048
     Dates: start: 20110217
  2. NORVASC [Suspect]
     Indication: HYPERTENSION
     Dosage: 5 MG, UNK
     Route: 048
     Dates: start: 20110217

REACTIONS (2)
  - Pneumonia [Fatal]
  - Respiratory disorder [Fatal]
